FAERS Safety Report 9097736 (Version 1)
Quarter: 2013Q1

REPORT INFORMATION
  Report Type: Spontaneous
  Country: IN (occurrence: IN)
  Receive Date: 20130212
  Receipt Date: 20130212
  Transmission Date: 20140127
  Serious: Yes (Hospitalization)
  Sender: FDA-Public Use
  Company Number: PHHY2013IN011359

PATIENT
  Age: 12 Year
  Sex: Male
  Weight: 28 kg

DRUGS (9)
  1. SIMULECT [Suspect]
     Indication: RENAL TRANSPLANT
     Dosage: 20 MG, UNK
     Dates: start: 20121015
  2. SIMULECT [Suspect]
     Dosage: 20 MG, UNK
     Dates: start: 20121017
  3. PANTOP [Concomitant]
     Dosage: 40 MG, QD
  4. SEPTRAN [Concomitant]
  5. ENVAS [Concomitant]
  6. EPTOIN [Concomitant]
     Dosage: 50 MG, BID
  7. VALPARIN [Concomitant]
     Dosage: 150 MG, TID
  8. AQUAZIDE [Concomitant]
     Dosage: 12.5 MG, UNK
  9. LIVIPIL [Concomitant]
     Dosage: 250 MG, QD

REACTIONS (8)
  - Hypernatraemia [Unknown]
  - Renal vein thrombosis [Unknown]
  - Kidney transplant rejection [Unknown]
  - Complications of transplanted kidney [Unknown]
  - Hyperkalaemia [Unknown]
  - Platelet count increased [Unknown]
  - Platelet count decreased [Unknown]
  - Haemoglobin decreased [Unknown]
